FAERS Safety Report 10673721 (Version 2)
Quarter: 2015Q1

REPORT INFORMATION
  Report Type: Report from Study
  Country: JP (occurrence: None)
  Receive Date: 20141222
  Receipt Date: 20150206
  Transmission Date: 20150720
  Serious: Yes (Hospitalization, Other)
  Sender: FDA-Public Use
  Company Number: 2014MPI01660

PATIENT
  Age: 78 Year
  Sex: Female
  Weight: 60 kg

DRUGS (5)
  1. ANTIHISTAMINES [Concomitant]
     Active Substance: ANTIHISTAMINES NOS
  2. ADCETRIS [Suspect]
     Active Substance: BRENTUXIMAB VEDOTIN
     Indication: HODGKIN^S DISEASE
     Route: 041
     Dates: start: 20140630, end: 20140630
  3. ACETAMINOPHEN. [Concomitant]
     Active Substance: ACETAMINOPHEN
  4. CORTICOSTEROIDS [Concomitant]
     Active Substance: CORTICOSTEROID NOS
  5. VALTREX (VALACICLOVIR HYDROCHLO9RIDE) [Concomitant]

REACTIONS (4)
  - Ileus paralytic [None]
  - Bronchitis [None]
  - Enterocolitis [None]
  - Constipation [None]

NARRATIVE: CASE EVENT DATE: 20140709
